FAERS Safety Report 9284136 (Version 1)
Quarter: 2013Q2

REPORT INFORMATION
  Report Type: Spontaneous
  Country: None (occurrence: None)
  Receive Date: 20130502
  Receipt Date: 20130502
  Transmission Date: 20140414
  Serious: Yes (Hospitalization)
  Sender: FDA-Public Use
  Company Number: 1689878

PATIENT
  Age: 21 Year
  Sex: Male
  Weight: 40.82 kg

DRUGS (1)
  1. (GENTAMICIN SULFATE) [Suspect]
     Indication: PROPHYLAXIS
     Dates: start: 20130121

REACTIONS (4)
  - Bradycardia [None]
  - Hypotension [None]
  - Lip disorder [None]
  - Rash [None]
